FAERS Safety Report 6553692-5 (Version None)
Quarter: 2010Q1

REPORT INFORMATION
  Report Type: 
  Country: None (occurrence: None)
  Receive Date: 20100127
  Receipt Date: 20100122
  Transmission Date: 20100710
  Serious: Yes (Death, Other)
  Sender: FDA-Public Use
  Company Number: PHHY2010CA03680

PATIENT
  Sex: Female
  Weight: 63.8 kg

DRUGS (1)
  1. ALISKIREN ALI+ [Suspect]

REACTIONS (2)
  - DEATH [None]
  - HYPERTENSION [None]
